FAERS Safety Report 8313564-2 (Version None)
Quarter: 2012Q2

REPORT INFORMATION
  Report Type: 
  Country: None (occurrence: None)
  Receive Date: 20120425
  Receipt Date: 20120425
  Transmission Date: 20120825
  Serious: Yes (Other)
  Sender: FDA-Public Use
  Company Number: None

PATIENT
  Age: 81 Year
  Sex: Male
  Weight: 61.6892 kg

DRUGS (1)
  1. CIPROFLOXACIN HCL 500 MG TAB BAYER [Suspect]
     Indication: NEPHROLITHIASIS
     Dosage: 1 TABLET 2X PER DAY MOUTH
     Route: 048
     Dates: start: 20120218, end: 20120225

REACTIONS (1)
  - VISUAL ACUITY REDUCED [None]
